FAERS Safety Report 7780746-8 (Version None)
Quarter: 2011Q3

REPORT INFORMATION
  Report Type: 
  Country: None (occurrence: None)
  Receive Date: 20110927
  Receipt Date: 20110721
  Transmission Date: 20111222
  Serious: No
  Sender: FDA-Public Use
  Company Number: US-BRISTOL-MYERS SQUIBB COMPANY-15918279

PATIENT

DRUGS (3)
  1. HYDROCHLOROTHIAZIDE [Suspect]
  2. METOLAZONE [Suspect]
     Indication: OEDEMA PERIPHERAL
     Dosage: 2-3 TIMES A WEEK
  3. AVAPRO [Suspect]

REACTIONS (1)
  - RASH [None]
